FAERS Safety Report 7752474-6 (Version None)
Quarter: 2011Q3

REPORT INFORMATION
  Report Type: 
  Country: None (occurrence: None)
  Receive Date: 20110915
  Receipt Date: 20110906
  Transmission Date: 20111222
  Serious: Yes (Other)
  Sender: FDA-Public Use
  Company Number: BR-SANOFI-AVENTIS-2011SA057445

PATIENT
  Sex: Female

DRUGS (6)
  1. PREDNISONE [Concomitant]
     Indication: RHEUMATOID ARTHRITIS
     Route: 048
     Dates: start: 20080101
  2. RITUXIMAB [Concomitant]
     Dates: start: 20110101, end: 20110101
  3. CALCIUM CARBONATE [Concomitant]
     Route: 048
     Dates: start: 20090101, end: 20110701
  4. METHOTREXATE [Concomitant]
     Indication: RHEUMATOID ARTHRITIS
     Route: 058
     Dates: start: 20080101, end: 20110701
  5. ARAVA [Suspect]
     Indication: RHEUMATOID ARTHRITIS
     Route: 048
     Dates: start: 20080101, end: 20110701
  6. FOLIC ACID [Concomitant]

REACTIONS (3)
  - MATERNAL EXPOSURE DURING PREGNANCY [None]
  - BENIGN HYDATIDIFORM MOLE [None]
  - OFF LABEL USE [None]
